FAERS Safety Report 9937678 (Version 1)
Quarter: 2014Q1

REPORT INFORMATION
  Report Type: Spontaneous
  Country: US (occurrence: US)
  Receive Date: 20140303
  Receipt Date: 20140303
  Transmission Date: 20141002
  Serious: No
  Sender: FDA-Public Use
  Company Number: US-BIOGENIDEC-2014BI015583

PATIENT
  Age: 54 Year
  Sex: Male
  Weight: 78 kg

DRUGS (8)
  1. TECFIDERA [Suspect]
     Indication: MULTIPLE SCLEROSIS
     Route: 048
     Dates: start: 201308
  2. LISINOPRIL [Concomitant]
  3. AMLODIPINE [Concomitant]
  4. ZOLOFT [Concomitant]
  5. METFORMIN [Concomitant]
  6. CIALIS [Concomitant]
  7. VITAMIN D [Concomitant]
  8. IBUPROFEN [Concomitant]

REACTIONS (1)
  - Night sweats [Not Recovered/Not Resolved]
